FAERS Safety Report 4518285-X (Version None)
Quarter: 2004Q4

REPORT INFORMATION
  Report Type: 
  Country: None (occurrence: None)
  Receive Date: 20041130
  Receipt Date: 20041116
  Transmission Date: 20050328
  Serious: Yes (Hospitalization)
  Sender: FDA-Public Use
  Company Number: FABR-10880

PATIENT
  Age: 57 Year
  Sex: Female
  Weight: 61.2 kg

DRUGS (12)
  1. FABRAZYME [Suspect]
     Indication: FABRY'S DISEASE
     Dosage: 30 MG Q2WKS, IV
     Route: 042
     Dates: start: 20040121, end: 20040901
  2. FABRAZYME [Suspect]
     Indication: FABRY'S DISEASE
     Dosage: 60 MG Q2WKS, IV
     Route: 042
     Dates: start: 20041124
  3. PROZAC [Concomitant]
  4. LASIX [Concomitant]
  5. IMURAN [Concomitant]
  6. PREDNISONE [Concomitant]
  7. VASOTEC [Concomitant]
  8. TAGAMET [Concomitant]
  9. FOSAMAX [Concomitant]
  10. HORMONE REPLACEMENT THERAPY [Concomitant]
  11. LIPITOR [Concomitant]
  12. CYCLOSPORINE [Concomitant]

REACTIONS (7)
  - AORTIC VALVE REPLACEMENT [None]
  - CARDIAC OPERATION [None]
  - DIZZINESS [None]
  - HYPERHIDROSIS [None]
  - POST PROCEDURAL COMPLICATION [None]
  - RENAL INTERSTITIAL FIBROSIS [None]
  - VENTRICULAR TACHYCARDIA [None]
